FAERS Safety Report 8345958-3 (Version None)
Quarter: 2012Q2

REPORT INFORMATION
  Report Type: 
  Country: None (occurrence: None)
  Receive Date: 20120509
  Receipt Date: 20120214
  Transmission Date: 20120825
  Serious: Yes (Death, Other)
  Sender: FDA-Public Use
  Company Number: KR-CELGENEUS-286-20785-09120076

PATIENT

DRUGS (14)
  1. THALIDOMIDE [Suspect]
     Indication: MULTIPLE MYELOMA
     Dosage: 50-100 MG
     Route: 048
  2. GABAPENTIN [Concomitant]
     Dosage: 300MG-1,800MG
     Route: 065
  3. DEXAMETHASONE [Suspect]
     Indication: MULTIPLE MYELOMA
     Dosage: 20 MILLIGRAM/SQ. METER
     Route: 041
  4. ASPIRIN [Concomitant]
     Dosage: 100 MILLIGRAM
     Route: 065
  5. PROTON PUMP INHIBITOR [Concomitant]
     Indication: PROPHYLAXIS
     Route: 065
  6. ZOLEDRONOC ACID [Concomitant]
     Route: 065
  7. OPIOIDS [Concomitant]
     Indication: PAIN MANAGEMENT
     Route: 065
  8. BORTEZOMIB [Suspect]
     Dosage: 1-0.7 MG/M2
     Route: 041
  9. BORTEZOMIB [Suspect]
     Indication: MULTIPLE MYELOMA
     Dosage: 1.3 MILLIGRAM/SQ. METER
     Route: 041
  10. CYCLOPHOSPHAMIDE [Suspect]
     Indication: MULTIPLE MYELOMA
     Dosage: 150 MILLIGRAM/SQ. METER
     Route: 048
  11. PAMIDRONATE DISODIUM [Concomitant]
     Route: 065
  12. TRIMETHOPRIM + SULFAMETHOXAZOLE [Concomitant]
     Route: 065
  13. NON-STEROIDAL ANTI-INFLAMMATORIES [Concomitant]
     Route: 065
  14. THALIDOMIDE [Suspect]
     Dosage: 50-100
     Route: 048

REACTIONS (35)
  - DELIRIUM [None]
  - GASTRIC ULCER [None]
  - OEDEMA PERIPHERAL [None]
  - PERIPHERAL MOTOR NEUROPATHY [None]
  - INSOMNIA [None]
  - ANAEMIA [None]
  - PNEUMONIA [None]
  - SEPSIS [None]
  - DISEASE PROGRESSION [None]
  - NEUTROPENIA [None]
  - BLOOD BILIRUBIN INCREASED [None]
  - CONSTIPATION [None]
  - PERIPHERAL SENSORY NEUROPATHY [None]
  - ASPARTATE AMINOTRANSFERASE INCREASED [None]
  - ANXIETY [None]
  - DIZZINESS [None]
  - DYSPNOEA [None]
  - PULMONARY EMBOLISM [None]
  - LEUKOPENIA [None]
  - THROMBOCYTOPENIA [None]
  - PAIN [None]
  - NAUSEA [None]
  - VOMITING [None]
  - RASH [None]
  - HERPES ZOSTER [None]
  - FATIGUE [None]
  - ALOPECIA [None]
  - DECREASED APPETITE [None]
  - PYREXIA [None]
  - SOMNOLENCE [None]
  - ASTHENIA [None]
  - ACUTE MYOCARDIAL INFARCTION [None]
  - FEBRILE NEUTROPENIA [None]
  - ALANINE AMINOTRANSFERASE INCREASED [None]
  - DIARRHOEA [None]
